FAERS Safety Report 19369092 (Version 2)
Quarter: 2021Q2

REPORT INFORMATION
  Report Type: Spontaneous
  Country: US (occurrence: US)
  Receive Date: 20210603
  Receipt Date: 20210603
  Transmission Date: 20210717
  Serious: No
  Sender: FDA-Public Use
  Company Number: US-SPECGX-T202001892

PATIENT

DRUGS (1)
  1. HYDROCODONE/ACETAMINOPHEN [Suspect]
     Active Substance: ACETAMINOPHEN\HYDROCODONE
     Indication: PAIN
     Dosage: 1 DOSAGE FORM, QD
     Route: 065

REACTIONS (2)
  - Feeling abnormal [Unknown]
  - Drug ineffective [Unknown]
